FAERS Safety Report 17076101 (Version 2)
Quarter: 2020Q1

REPORT INFORMATION
  Report Type: Report from Study
  Country: IT (occurrence: IT)
  Receive Date: 20191126
  Receipt Date: 20200309
  Transmission Date: 20200409
  Serious: Yes (Other)
  Sender: FDA-Public Use
  Company Number: IT-MYLANLABS-2019M1113596

PATIENT
  Age: 60 Year
  Sex: Male

DRUGS (4)
  1. OXALIPLATIN. [Suspect]
     Active Substance: OXALIPLATIN
     Indication: ADENOCARCINOMA
     Dosage: UNK
     Route: 042
     Dates: start: 20180828
  2. PLASIL                             /00041901/ [Concomitant]
     Active Substance: METOCLOPRAMIDE
     Indication: NAUSEA
     Dosage: UNK
     Route: 065
  3. FLUOROURACIL. [Suspect]
     Active Substance: FLUOROURACIL
     Indication: ADENOCARCINOMA
     Dosage: UNK
     Route: 042
  4. INHIXA [Concomitant]
     Active Substance: ENOXAPARIN SODIUM

REACTIONS (5)
  - Decreased appetite [Unknown]
  - Leukopenia [Unknown]
  - Nausea [Unknown]
  - Thrombocytopenia [Unknown]
  - Paraesthesia [Unknown]

NARRATIVE: CASE EVENT DATE: 20180930
